FAERS Safety Report 4416605-8 (Version None)
Quarter: 2004Q3

REPORT INFORMATION
  Report Type: 
  Country: None (occurrence: None)
  Receive Date: 20040802
  Receipt Date: 20040722
  Transmission Date: 20050211
  Serious: Yes (Other)
  Sender: FDA-Public Use
  Company Number: 200410496BNE

PATIENT
  Age: 40 Year
  Sex: Male

DRUGS (1)
  1. LEVITRA [Suspect]
     Dosage: 10 MG, TOTAL DAILY, ORAL
     Route: 048
     Dates: start: 20040718

REACTIONS (5)
  - ALCOHOL USE [None]
  - CONVULSION [None]
  - MEDICATION ERROR [None]
  - SELF-MEDICATION [None]
  - SYNCOPE [None]
